FAERS Safety Report 17312577 (Version 3)
Quarter: 2020Q1

REPORT INFORMATION
  Report Type: Spontaneous
  Country: ZW (occurrence: ZW)
  Receive Date: 20200123
  Receipt Date: 20200221
  Transmission Date: 20200409
  Serious: Yes (Life-Threatening)
  Sender: FDA-Public Use
  Company Number: ZW-NOVOPROD-707815

PATIENT
  Sex: Male

DRUGS (1)
  1. ACTRAPHANE [Suspect]
     Active Substance: INSULIN HUMAN
     Indication: DIABETES MELLITUS
     Dosage: 62 IU, QD(42 IU AM AND 22 IU NIGHT)
     Route: 058

REACTIONS (6)
  - Weight decreased [Recovering/Resolving]
  - Hyperhidrosis [Recovering/Resolving]
  - Suspected counterfeit product [Unknown]
  - Blood glucose increased [Recovering/Resolving]
  - Liquid product physical issue [Unknown]
  - Hyperphagia [Recovering/Resolving]
